FAERS Safety Report 17954372 (Version 2)
Quarter: 2021Q1

REPORT INFORMATION
  Report Type: Spontaneous
  Country: US (occurrence: US)
  Receive Date: 20200629
  Receipt Date: 20210312
  Transmission Date: 20210419
  Serious: Yes (Death, Other)
  Sender: FDA-Public Use
  Company Number: US-SA-2020SA165651

PATIENT
  Age: 68 Year
  Sex: Female

DRUGS (1)
  1. ZANTAC [Suspect]
     Active Substance: RANITIDINE HYDROCHLORIDE
     Indication: DYSPEPSIA
     Dosage: 150 UNK, QD
     Dates: start: 201101, end: 201703

REACTIONS (2)
  - Hepatic cancer [Fatal]
  - Gallbladder cancer [Unknown]

NARRATIVE: CASE EVENT DATE: 20170310
